FAERS Safety Report 17579328 (Version 1)
Quarter: 2020Q1

REPORT INFORMATION
  Report Type: Spontaneous
  Country: US (occurrence: US)
  Receive Date: 20200325
  Receipt Date: 20200325
  Transmission Date: 20200409
  Serious: Yes (Other)
  Sender: FDA-Public Use
  Company Number: US-ALLERGAN-1942348US

PATIENT
  Age: 91 Year
  Sex: Female

DRUGS (3)
  1. MYRBETRIQ [Concomitant]
     Active Substance: MIRABEGRON
     Dosage: 50 MG, QD
     Route: 048
     Dates: start: 201908
  2. MYRBETRIQ [Concomitant]
     Active Substance: MIRABEGRON
     Dosage: UNK
     Dates: start: 201902
  3. OXYBUTYNIN PCH - BP [Suspect]
     Active Substance: OXYBUTYNIN
     Indication: PRODUCT USED FOR UNKNOWN INDICATION
     Dosage: 15 MG
     Route: 065
     Dates: start: 201907, end: 201907

REACTIONS (8)
  - Urinary retention [Unknown]
  - Joint swelling [Unknown]
  - Cough [Unknown]
  - Swelling face [Unknown]
  - Throat irritation [Unknown]
  - Peripheral swelling [Unknown]
  - Sinus disorder [Unknown]
  - Dry mouth [Unknown]

NARRATIVE: CASE EVENT DATE: 201907
